FAERS Safety Report 8487620 (Version 13)
Quarter: 2013Q4

REPORT INFORMATION
  Report Type: Report from Study
  Country: US (occurrence: US)
  Receive Date: 20120402
  Receipt Date: 20131220
  Transmission Date: 20140711
  Serious: Yes (Hospitalization)
  Sender: FDA-Public Use
  Company Number: US-GLAXOSMITHKLINE-A0971600A

PATIENT
  Sex: Male

DRUGS (23)
  1. ADVAIR [Suspect]
     Indication: CHRONIC OBSTRUCTIVE PULMONARY DISEASE
     Dosage: 1PUFF TWICE PER DAY
     Route: 055
  2. AMBIEN [Concomitant]
  3. ASPIRIN [Concomitant]
     Indication: DECREASED IMMUNE RESPONSIVENESS
     Route: 042
  4. MULTIVITAMIN [Concomitant]
  5. CYMBALTA [Concomitant]
  6. DIAMOX [Concomitant]
  7. DOCUSATE [Concomitant]
  8. DUONEB [Concomitant]
  9. FLUNISOLIDE [Concomitant]
  10. FUROSEMIDE [Concomitant]
  11. GABAPENTIN [Concomitant]
  12. UNKNOWN MEDICATION [Concomitant]
  13. LOPID [Concomitant]
  14. LORATADINE [Concomitant]
  15. METOPROLOL [Concomitant]
  16. MIDRIN [Concomitant]
  17. OLANZAPINE [Concomitant]
  18. PATANASE [Concomitant]
  19. PERCOCET [Concomitant]
  20. SENNA [Concomitant]
  21. SINGULAIR [Concomitant]
  22. SYMBICORT [Concomitant]
  23. OXYGEN [Concomitant]

REACTIONS (16)
  - Staphylococcal infection [Unknown]
  - Pulmonary function challenge test abnormal [Unknown]
  - Immune system disorder [Unknown]
  - Chronic obstructive pulmonary disease [Unknown]
  - Total lung capacity decreased [Unknown]
  - Asthenia [Unknown]
  - Oral candidiasis [Unknown]
  - Wheelchair user [Unknown]
  - Panic attack [Unknown]
  - Dyspnoea [Unknown]
  - Frustration [Unknown]
  - Dry mouth [Unknown]
  - Chronic obstructive pulmonary disease [Unknown]
  - Malaise [Unknown]
  - Oxygen saturation decreased [Unknown]
  - Adverse drug reaction [Unknown]
